FAERS Safety Report 4952143-1 (Version None)
Quarter: 2006Q1

REPORT INFORMATION
  Report Type: 
  Country: None (occurrence: None)
  Receive Date: 20060320
  Receipt Date: 20060306
  Transmission Date: 20060701
  Serious: Yes (Hospitalization, Other)
  Sender: FDA-Public Use
  Company Number: 2006021651

PATIENT
  Age: 62 Year
  Sex: Female
  Weight: 58 kg

DRUGS (13)
  1. SOLU-MEDROL [Suspect]
     Indication: SUDDEN HEARING LOSS
     Dosage: 500 MG (500 MG, 1 IN 1 D), INTRAVENOUS
     Route: 042
     Dates: start: 20060122, end: 20060122
  2. DEPAS (ETIZOLAM) [Concomitant]
  3. NE (TOCOPHERYL NICOTINATE) [Concomitant]
  4. SEDIEL (TANDOSPIRONE  CITRATE) [Concomitant]
  5. MONTELUKAST SODIUM (MONTELUKAST SODIUM) [Concomitant]
  6. TULOBUTEROL HYDROCHLORIDE (TULOBUTEROL HYDROCHLORIDE) [Concomitant]
  7. ADETPHOS (ADENOSINE TRIPHOSPHATE, DISODIUM SALT) [Concomitant]
  8. CEPHADOL (DIFENIDOL HYDROCHLORIDE) [Concomitant]
  9. LAFUTIDINE (LAFUTIDINE) [Concomitant]
  10. ALPROSTADIL [Concomitant]
  11. SOLITA-T3 INJECTION (POTASSIUM CHLORIDE, SODIUM CHLORIDE, SODIUM LACTA [Concomitant]
  12. SOLDEM 3A (CARBOHYDRATES NOS, POTASSIUM CHLORIDE, SODIUM CHLORIDE,SODI [Concomitant]
  13. VEEN-F (CALCIUM CHLORIDE ANHYDROUS, MAGNESIUM CHLORIDE ANHYDROUS, POTA [Concomitant]

REACTIONS (14)
  - BRONCHOSPASM [None]
  - DRUG HYPERSENSITIVITY [None]
  - DYSPNOEA [None]
  - GENERALISED ERYTHEMA [None]
  - GENITAL DISORDER FEMALE [None]
  - HOT FLUSH [None]
  - MUCOUS MEMBRANE DISORDER [None]
  - PARAESTHESIA ORAL [None]
  - RASH GENERALISED [None]
  - SENSORY DISTURBANCE [None]
  - SHOCK [None]
  - SWELLING [None]
  - THROAT IRRITATION [None]
  - VOMITING [None]
